FAERS Safety Report 18648214 (Version 1)
Quarter: 2020Q4

REPORT INFORMATION
  Report Type: Spontaneous
  Country: US (occurrence: US)
  Receive Date: 20201221
  Receipt Date: 20201221
  Transmission Date: 20210114
  Serious: No
  Sender: FDA-Public Use
  Company Number: None

PATIENT
  Sex: Female

DRUGS (1)
  1. CVS ALCOHOL PREP [Suspect]
     Active Substance: ISOPROPYL ALCOHOL
     Indication: PRODUCT USED FOR UNKNOWN INDICATION
     Dosage: ?          OTHER STRENGTH:#130344R;OTHER DOSE:AS DIRECTED;OTHER FREQUENCY:AS DIRECTED;OTHER ROUTE:AS DIRECTED?
     Dates: start: 20190531

REACTIONS (1)
  - Product packaging quantity issue [None]
